FAERS Safety Report 7145347-3 (Version None)
Quarter: 2010Q4

REPORT INFORMATION
  Report Type: 
  Country: None (occurrence: None)
  Receive Date: 20101208
  Receipt Date: 20100413
  Transmission Date: 20110411
  Serious: Yes (Hospitalization)
  Sender: FDA-Public Use
  Company Number: US-SANOFI-AVENTIS-2010SA020469

PATIENT
  Age: 67 Year
  Sex: Male

DRUGS (8)
  1. PLAVIX [Suspect]
     Indication: ACUTE MYOCARDIAL INFARCTION
     Route: 048
     Dates: start: 20090201, end: 20090401
  2. PLAVIX [Suspect]
     Indication: STENT PLACEMENT
     Route: 048
     Dates: start: 20090201, end: 20090401
  3. WARFARIN SODIUM [Suspect]
     Indication: ATRIAL FIBRILLATION
     Route: 048
     Dates: start: 20090101, end: 20090401
  4. ASPIRIN [Suspect]
     Route: 065
     Dates: end: 20090401
  5. SIMVASTATIN [Concomitant]
  6. METOPROLOL [Concomitant]
     Dates: start: 20090201
  7. DIGOXIN [Concomitant]
     Dates: start: 20090201
  8. LISINOPRIL [Concomitant]

REACTIONS (6)
  - CONFUSIONAL STATE [None]
  - DIZZINESS [None]
  - HEADACHE [None]
  - HEART RATE DECREASED [None]
  - RASH [None]
  - SUBDURAL HAEMATOMA [None]
